FAERS Safety Report 25508551 (Version 1)
Quarter: 2025Q3

REPORT INFORMATION
  Report Type: Spontaneous
  Country: US (occurrence: US)
  Receive Date: 20250703
  Receipt Date: 20250703
  Transmission Date: 20251020
  Serious: No
  Sender: KYOWA
  Company Number: US-KYOWAKIRIN-2025KK012555

PATIENT

DRUGS (1)
  1. NOURIANZ [Suspect]
     Active Substance: ISTRADEFYLLINE
     Indication: Product used for unknown indication
     Dosage: 20 MG, QD (20 MG: TAKE 1 TABLET BY MOUTH DAILY FOR 90 DAYS)
     Route: 048
     Dates: start: 20241227

REACTIONS (1)
  - Product dose omission issue [Unknown]
